FAERS Safety Report 19901606 (Version 6)
Quarter: 2022Q1

REPORT INFORMATION
  Report Type: Report from Study
  Country: US (occurrence: US)
  Receive Date: 20210929
  Receipt Date: 20220126
  Transmission Date: 20220423
  Serious: Yes (Death, Life-Threatening, Other)
  Sender: FDA-Public Use
  Company Number: US-NOVARTISTESTPH-NVSC2021US184094

PATIENT
  Age: 1 Year
  Sex: Female
  Weight: 17.6 kg

DRUGS (4)
  1. TREPROSTINIL [Suspect]
     Active Substance: TREPROSTINIL
     Indication: Pulmonary arterial hypertension
     Dosage: 94 NG/KG/MIN
     Route: 058
  2. TREPROSTINIL [Suspect]
     Active Substance: TREPROSTINIL
     Dosage: 94 NG/KG/MIN
     Route: 058
     Dates: start: 20210810
  3. TREPROSTINIL [Suspect]
     Active Substance: TREPROSTINIL
     Dosage: 94 NG/KG/MIN
     Route: 058
     Dates: start: 20210810
  4. TRACLEER [Concomitant]
     Active Substance: BOSENTAN
     Indication: Product used for unknown indication
     Dosage: UNK
     Route: 065

REACTIONS (8)
  - Viral infection [Fatal]
  - Multiple organ dysfunction syndrome [Fatal]
  - Fear of death [Not Recovered/Not Resolved]
  - Shock [Unknown]
  - Pyrexia [Unknown]
  - Disease progression [Not Recovered/Not Resolved]
  - Malaise [Not Recovered/Not Resolved]
  - Infusion site infection [Unknown]

NARRATIVE: CASE EVENT DATE: 20210918
